FAERS Safety Report 17983944 (Version 1)
Quarter: 2020Q3

REPORT INFORMATION
  Report Type: Spontaneous
  Country: US (occurrence: US)
  Receive Date: 20200706
  Receipt Date: 20200706
  Transmission Date: 20201103
  Serious: Yes (Disabling, Other)
  Sender: FDA-Public Use
  Company Number: None

PATIENT
  Age: 5 Year
  Sex: Male
  Weight: 21.6 kg

DRUGS (4)
  1. MONTELUKAST [Suspect]
     Active Substance: MONTELUKAST SODIUM
     Indication: ASTHMA
     Dates: start: 20200301, end: 20200525
  2. ADVAIR HFA [Concomitant]
     Active Substance: FLUTICASONE PROPIONATE\SALMETEROL XINAFOATE
  3. MONTELUKAST [Suspect]
     Active Substance: MONTELUKAST SODIUM
     Indication: HYPERSENSITIVITY
     Dates: start: 20200301, end: 20200525
  4. ALLERTEC [Concomitant]
     Active Substance: CETIRIZINE HYDROCHLORIDE

REACTIONS (13)
  - Obsessive-compulsive disorder [None]
  - Abnormal behaviour [None]
  - Psychiatric symptom [None]
  - Hallucination, visual [None]
  - Anxiety [None]
  - Nightmare [None]
  - Anger [None]
  - Asthenia [None]
  - Tremor [None]
  - Self-injurious ideation [None]
  - Depression [None]
  - Screaming [None]
  - Aggression [None]

NARRATIVE: CASE EVENT DATE: 20200505
